FAERS Safety Report 6827317-5 (Version None)
Quarter: 2010Q3

REPORT INFORMATION
  Report Type: 
  Country: None (occurrence: None)
  Receive Date: 20100709
  Receipt Date: 20100701
  Transmission Date: 20110219
  Serious: Yes (Other)
  Sender: FDA-Public Use
  Company Number: US-ABBOTT-10P-163-0655095-00

PATIENT
  Sex: Female
  Weight: 65.83 kg

DRUGS (5)
  1. NIASPAN [Suspect]
     Indication: BLOOD CHOLESTEROL INCREASED
     Dosage: EVERY NIGHT
     Dates: start: 20070101, end: 20080101
  2. NIASPAN [Suspect]
     Dates: start: 20080101
  3. DIOVAN [Concomitant]
     Indication: HYPERTENSION
     Dosage: EVERY NIGHT
     Route: 048
  4. ENALAPRIL MALEATE [Concomitant]
     Indication: HYPERTENSION
     Dosage: EVERY NIGHT
  5. ZETIA [Concomitant]
     Indication: BLOOD CHOLESTEROL INCREASED
     Dosage: EVERY NIGHT

REACTIONS (6)
  - ARTHRALGIA [None]
  - ARTHRITIS [None]
  - BLOOD GLUCOSE INCREASED [None]
  - FLUSHING [None]
  - PAIN IN EXTREMITY [None]
  - THROMBOSIS [None]
